FAERS Safety Report 23757327 (Version 1)
Quarter: 2024Q2

REPORT INFORMATION
  Report Type: Spontaneous
  Country: CA (occurrence: CA)
  Receive Date: 20240418
  Receipt Date: 20240418
  Transmission Date: 20240715
  Serious: Yes (Death, Other)
  Sender: FDA-Public Use
  Company Number: CA-BRISTOL-MYERS SQUIBB COMPANY-2024-061131

PATIENT
  Sex: Male

DRUGS (7)
  1. PACLITAXEL [Suspect]
     Active Substance: PACLITAXEL
     Indication: Product used for unknown indication
  2. BLEOMYCIN [Concomitant]
     Active Substance: BLEOMYCIN SULFATE
     Indication: Testicular germ cell cancer metastatic
     Route: 042
  3. CISPLATIN [Concomitant]
     Active Substance: CISPLATIN
     Indication: Testicular germ cell cancer metastatic
     Route: 042
  4. ETOPOSIDE [Concomitant]
     Active Substance: ETOPOSIDE
     Indication: Testicular germ cell cancer metastatic
     Route: 042
  5. IFOSFAMIDE [Concomitant]
     Active Substance: IFOSFAMIDE
     Indication: Testicular germ cell cancer metastatic
     Route: 042
  6. MESNA [Concomitant]
     Active Substance: MESNA
     Indication: Product used for unknown indication
  7. PACLITAXEL [Concomitant]
     Active Substance: PACLITAXEL
     Indication: Testicular germ cell cancer metastatic
     Route: 042

REACTIONS (1)
  - Death [Fatal]
